FAERS Safety Report 4307351-X (Version None)
Quarter: 2004Q1

REPORT INFORMATION
  Report Type: 
  Country: None (occurrence: None)
  Receive Date: 20040226
  Receipt Date: 20040212
  Transmission Date: 20041129
  Serious: Yes (Other)
  Sender: FDA-Public Use
  Company Number: 2004002804

PATIENT
  Age: 70 Year
  Sex: Male
  Weight: 72.5755 kg

DRUGS (7)
  1. NEURONTIN [Suspect]
     Indication: NEUROPATHY PERIPHERAL
     Dosage: 900 MG (TID), ORAL
     Route: 048
     Dates: start: 20031222
  2. PACLITAXEL [Suspect]
     Indication: NON-SMALL CELL LUNG CANCER
     Dosage: INTRAVENOUS
     Route: 042
     Dates: start: 20030917, end: 20031231
  3. PYRIDOXINE HCL [Concomitant]
  4. SIMVASTATIN [Concomitant]
  5. VERAPAMIL HCL [Concomitant]
  6. SERTRALINE HCL [Concomitant]
  7. ZOLPIDEM TARTRATE [Concomitant]

REACTIONS (13)
  - BODY TEMPERATURE DECREASED [None]
  - BREATH SOUNDS DECREASED [None]
  - COLD SWEAT [None]
  - DRUG INEFFECTIVE [None]
  - ERYTHEMA [None]
  - FEELING ABNORMAL [None]
  - FEELING COLD [None]
  - HAEMATOCRIT DECREASED [None]
  - HAEMOGLOBIN DECREASED [None]
  - HYPERHIDROSIS [None]
  - PERIPHERAL SENSORY NEUROPATHY [None]
  - RASH [None]
  - WHITE BLOOD CELL COUNT INCREASED [None]
